FAERS Safety Report 7759707-0 (Version None)
Quarter: 2011Q3

REPORT INFORMATION
  Report Type: 
  Country: None (occurrence: None)
  Receive Date: 20110919
  Receipt Date: 20110909
  Transmission Date: 20111222
  Serious: Yes (Hospitalization)
  Sender: FDA-Public Use
  Company Number: US-CELGENEUS-163-21880-11080206

PATIENT
  Sex: Female
  Weight: 44.492 kg

DRUGS (7)
  1. REVLIMID [Suspect]
     Dosage: 5 MILLIGRAM
     Route: 048
     Dates: start: 20110701
  2. GAS X [Concomitant]
     Route: 065
  3. CELEXA [Concomitant]
     Route: 065
  4. TYLENOL-500 [Concomitant]
     Route: 065
  5. REVLIMID [Suspect]
     Indication: MULTIPLE MYELOMA
     Dosage: 15 MILLIGRAM
     Route: 048
     Dates: start: 20110401, end: 20110401
  6. TYLENOL W/ CODEINE [Concomitant]
     Route: 065
  7. PROBIOTIC [Concomitant]
     Route: 065

REACTIONS (5)
  - FALL [None]
  - DISORIENTATION [None]
  - CLOSTRIDIAL INFECTION [None]
  - CLAVICLE FRACTURE [None]
  - ASTHENIA [None]
